FAERS Safety Report 5730395-8 (Version None)
Quarter: 2008Q2

REPORT INFORMATION
  Report Type: 
  Country: None (occurrence: None)
  Receive Date: 20080505
  Receipt Date: 20080505
  Transmission Date: 20081010
  Serious: Yes (Other)
  Sender: FDA-Public Use
  Company Number: None

PATIENT
  Age: 55 Year
  Sex: Male
  Weight: 91.173 kg

DRUGS (1)
  1. CIPROFLOXACIN HCL [Suspect]
     Indication: INFECTED CYST
     Dates: start: 20080501, end: 20080502

REACTIONS (3)
  - BLOOD BLISTER [None]
  - PRURITUS [None]
  - SKIN DISORDER [None]
